FAERS Safety Report 9986793 (Version 2)
Quarter: 2014Q1

REPORT INFORMATION
  Report Type: Report from Study
  Country: US (occurrence: US)
  Receive Date: 20140307
  Receipt Date: 20140320
  Transmission Date: 20141002
  Serious: Yes (Other)
  Sender: FDA-Public Use
  Company Number: US-ABBVIE-14P-163-1208062-00

PATIENT
  Sex: Female
  Weight: 114.41 kg

DRUGS (5)
  1. HUMIRA [Suspect]
     Indication: JUVENILE IDIOPATHIC ARTHRITIS
  2. CELLCEPT [Suspect]
     Indication: JUVENILE IDIOPATHIC ARTHRITIS
     Dates: start: 2013
  3. CELLCEPT [Suspect]
     Indication: UVEITIS
  4. ORTHO TRI CYCLEN [Concomitant]
     Indication: CONTRACEPTION
     Dosage: DAILY
  5. KENALOG [Concomitant]
     Indication: PRODUCT USED FOR UNKNOWN INDICATION

REACTIONS (7)
  - Blindness [Not Recovered/Not Resolved]
  - Injection site pain [Not Recovered/Not Resolved]
  - Upper respiratory tract infection [Unknown]
  - Arthralgia [Not Recovered/Not Resolved]
  - Injection site pain [Recovered/Resolved]
  - Weight decreased [Not Recovered/Not Resolved]
  - Abdominal discomfort [Not Recovered/Not Resolved]
